FAERS Safety Report 9023597 (Version 1)
Quarter: 2013Q1

REPORT INFORMATION
  Report Type: Spontaneous
  Country: US (occurrence: US)
  Receive Date: 20130121
  Receipt Date: 20130121
  Transmission Date: 20140127
  Serious: Yes (Death, Other)
  Sender: FDA-Public Use
  Company Number: US-UCBSA-075053

PATIENT
  Age: 38 Year
  Sex: Female

DRUGS (7)
  1. HYDROCODONE /ACETAMINOPHEN [Suspect]
     Route: 048
  2. METAXALONE [Suspect]
     Route: 048
  3. TRAMADOL [Suspect]
  4. BUPROPION [Suspect]
     Route: 048
  5. DIPHENHYDRAMINE [Suspect]
     Route: 048
  6. CITALOPRAM [Suspect]
     Route: 048
  7. AMITRIPTYLINE [Suspect]
     Route: 048

REACTIONS (2)
  - Cardio-respiratory arrest [Fatal]
  - Drug abuse [Fatal]
